FAERS Safety Report 5189071-5 (Version None)
Quarter: 2006Q4

REPORT INFORMATION
  Report Type: 
  Country: None (occurrence: None)
  Receive Date: 20061215
  Receipt Date: 20061129
  Transmission Date: 20070319
  Serious: No
  Sender: FDA-Public Use
  Company Number: COM # 06-198

PATIENT
  Sex: Female
  Weight: 86.1834 kg

DRUGS (1)
  1. METOPROLOL TARTRATE [Suspect]
     Indication: HYPERTENSION
     Dosage: 1 TABLET,2X DAILY, ORAL
     Route: 048

REACTIONS (1)
  - FLUID RETENTION [None]
